FAERS Safety Report 7539071-2 (Version None)
Quarter: 2011Q2

REPORT INFORMATION
  Report Type: 
  Country: None (occurrence: None)
  Receive Date: 20110610
  Receipt Date: 20020313
  Transmission Date: 20111010
  Serious: Yes (Death)
  Sender: FDA-Public Use
  Company Number: PHBS2002CA01867

PATIENT
  Sex: Male

DRUGS (5)
  1. FLOVENT [Concomitant]
     Dosage: 125 MG 2 PUFFS BID
  2. CLOZAPINE [Suspect]
     Indication: SCHIZOPHRENIA
     Dosage: 300 MG AM, 200 MG PM
     Route: 048
     Dates: start: 19920327
  3. ATROVENT [Concomitant]
     Dosage: 20 MG 2 PUFFS QID
  4. ALBUTEROL [Concomitant]
     Dosage: 200 UG PRN
  5. COMBIVENT [Concomitant]
     Dosage: 120 MG 2 PUFFS QID

REACTIONS (4)
  - RESPIRATORY FAILURE [None]
  - DYSPNOEA [None]
  - PERICARDIAL EFFUSION [None]
  - OEDEMA DUE TO CARDIAC DISEASE [None]
